FAERS Safety Report 21387875 (Version 1)
Quarter: 2022Q3

REPORT INFORMATION
  Report Type: Report from Study
  Country: US (occurrence: US)
  Receive Date: 20220928
  Receipt Date: 20220928
  Transmission Date: 20221026
  Serious: Yes (Hospitalization)
  Sender: FDA-Public Use
  Company Number: US-BRISTOL-MYERS SQUIBB COMPANY-2022-091135

PATIENT
  Age: 82 Year
  Sex: Male
  Weight: 80.74 kg

DRUGS (1)
  1. REVLIMID [Suspect]
     Active Substance: LENALIDOMIDE
     Indication: Plasma cell myeloma
     Dosage: DAILY FOR 21 DAYS OUT OF 28 DAYS?EXPIRY DATE: 30-SEP-2024
     Route: 048
     Dates: start: 20191014

REACTIONS (3)
  - Oral infection [Unknown]
  - Swelling face [Unknown]
  - Product dose omission issue [Unknown]
